FAERS Safety Report 23055460 (Version 1)
Quarter: 2023Q4

REPORT INFORMATION
  Report Type: Spontaneous
  Country: US (occurrence: US)
  Receive Date: 20231011
  Receipt Date: 20231011
  Transmission Date: 20240110
  Serious: Yes (Death)
  Sender: FDA-Public Use
  Company Number: US-TRAVERE-2023TVT00588

PATIENT
  Age: 80 Year
  Sex: Male

DRUGS (5)
  1. FILSPARI [Suspect]
     Active Substance: SPARSENTAN
     Indication: Chronic kidney disease
     Route: 048
     Dates: start: 20230617, end: 20230908
  2. FUROSEMIDE [Concomitant]
     Active Substance: FUROSEMIDE
  3. FENOFIBRATE [Concomitant]
     Active Substance: FENOFIBRATE
  4. Exetimibe [Concomitant]
  5. GLIPIZIDE [Concomitant]
     Active Substance: GLIPIZIDE

REACTIONS (2)
  - Death [Fatal]
  - Product use in unapproved indication [Unknown]
